FAERS Safety Report 8565066-6 (Version None)
Quarter: 2012Q3

REPORT INFORMATION
  Report Type: 
  Country: None (occurrence: None)
  Receive Date: 20120803
  Receipt Date: 20120726
  Transmission Date: 20120928
  Serious: Yes (Other)
  Sender: FDA-Public Use
  Company Number: CA-JNJFOC-20120303795

PATIENT
  Sex: Female
  Weight: 67 kg

DRUGS (3)
  1. IMURAN [Concomitant]
     Indication: CROHN'S DISEASE
     Route: 048
  2. REMICADE [Suspect]
     Route: 042
     Dates: start: 20110501
  3. REMICADE [Suspect]
     Indication: CROHN'S DISEASE
     Route: 042
     Dates: start: 20110524

REACTIONS (3)
  - PHARYNGITIS [None]
  - CROHN'S DISEASE [None]
  - MYOCARDIAL ISCHAEMIA [None]
